FAERS Safety Report 6122064-X (Version None)
Quarter: 2009Q1

REPORT INFORMATION
  Report Type: 
  Country: None (occurrence: None)
  Receive Date: 20090316
  Receipt Date: 20090316
  Transmission Date: 20090719
  Serious: No
  Sender: FDA-Public Use
  Company Number: None

PATIENT
  Sex: Male
  Weight: 44.5 kg

DRUGS (2)
  1. CISPLATIN [Suspect]
     Indication: OESOPHAGEAL CARCINOMA
     Dosage: 40 MG
     Dates: end: 20090302
  2. TAXOL [Suspect]
     Indication: OESOPHAGEAL CARCINOMA
     Dosage: 80 MG
     Dates: end: 20090302

REACTIONS (5)
  - DEHYDRATION [None]
  - DEVICE LEAKAGE [None]
  - OESOPHAGITIS [None]
  - PAIN [None]
  - WEIGHT DECREASED [None]
